FAERS Safety Report 9134863 (Version 1)
Quarter: 2013Q1

REPORT INFORMATION
  Report Type: Spontaneous
  Country: US (occurrence: US)
  Receive Date: 20130304
  Receipt Date: 20130304
  Transmission Date: 20140127
  Serious: Yes (Hospitalization)
  Sender: FDA-Public Use
  Company Number: US-ENDO PHARMACEUTICALS INC.-ENDC20110108

PATIENT
  Age: 41 None
  Sex: Male

DRUGS (2)
  1. ENDOCET [Suspect]
     Indication: PAIN
     Dosage: 40/2600 MG
     Route: 048
     Dates: start: 201009, end: 20110716
  2. ENDOCET [Suspect]
     Indication: INTERVERTEBRAL DISC PROTRUSION

REACTIONS (6)
  - Liver injury [Unknown]
  - Hepatomegaly [Not Recovered/Not Resolved]
  - Irritable bowel syndrome [Not Recovered/Not Resolved]
  - Hyperhidrosis [Not Recovered/Not Resolved]
  - Abdominal pain upper [Not Recovered/Not Resolved]
  - Malaise [Unknown]
